FAERS Safety Report 7945092-8 (Version None)
Quarter: 2011Q4

REPORT INFORMATION
  Report Type: 
  Country: None (occurrence: None)
  Receive Date: 20111129
  Receipt Date: 20111118
  Transmission Date: 20120403
  Serious: Yes (Other)
  Sender: FDA-Public Use
  Company Number: JP-SANOFI-AVENTIS-2011SA062379

PATIENT
  Age: 67 Year
  Sex: Female
  Weight: 49 kg

DRUGS (10)
  1. POLARAMINE [Concomitant]
     Indication: PREMEDICATION
     Route: 041
     Dates: start: 20100615, end: 20100615
  2. MEROPENEM [Concomitant]
     Route: 041
     Dates: start: 20100624, end: 20100628
  3. OCTREOTIDE ACETATE [Concomitant]
     Route: 041
     Dates: start: 20100624, end: 20100629
  4. OXALIPLATIN [Suspect]
     Dosage: DOSE : 85.1 MG/M2
     Route: 041
     Dates: start: 20100615, end: 20100615
  5. ALOXI [Concomitant]
     Indication: PREMEDICATION
     Route: 041
     Dates: start: 20100615, end: 20100615
  6. DEXAMETHASONE [Concomitant]
     Indication: PREMEDICATION
     Route: 041
     Dates: start: 20100615, end: 20100702
  7. FLUOROURACIL [Suspect]
     Dosage: DOSE : 283.7 MG/M2
     Route: 040
     Dates: start: 20100615, end: 20100615
  8. LEVOLEUCOVORIN CALCIUM [Concomitant]
     Indication: COLON CANCER
     Route: 041
     Dates: start: 20100615, end: 20100616
  9. FLUOROURACIL [Suspect]
     Dosage: DOSE : 354.6 MG/M2, CONTINUOUS INFUSION
     Route: 041
     Dates: start: 20100615, end: 20100616
  10. FAMOTIDINE [Concomitant]
     Indication: PREMEDICATION
     Route: 041
     Dates: start: 20100615, end: 20100615

REACTIONS (2)
  - RENAL FAILURE [None]
  - TUMOUR LYSIS SYNDROME [None]
